FAERS Safety Report 7609842-2 (Version None)
Quarter: 2011Q3

REPORT INFORMATION
  Report Type: 
  Country: None (occurrence: None)
  Receive Date: 20110714
  Receipt Date: 20110630
  Transmission Date: 20111222
  Serious: Yes (Other)
  Sender: FDA-Public Use
  Company Number: US-ENDO PHARMACEUTICALS INC.-OPER20110161

PATIENT
  Sex: Male

DRUGS (5)
  1. OPANA [Suspect]
     Indication: BACK PAIN
  2. OPANA ER [Suspect]
     Indication: NECK PAIN
     Route: 048
     Dates: start: 20110301, end: 20110601
  3. OPANA ER [Suspect]
     Indication: BACK PAIN
  4. HYDROCODONE [Concomitant]
     Dosage: UNK
     Route: 048
     Dates: start: 20100501, end: 20110301
  5. OPANA [Suspect]
     Indication: NECK PAIN
     Dosage: 2.5-5MG
     Route: 048
     Dates: start: 20110601

REACTIONS (5)
  - DIZZINESS [None]
  - CONSTIPATION [None]
  - DYSPNOEA [None]
  - DIARRHOEA [None]
  - SUDDEN HEARING LOSS [None]
